FAERS Safety Report 16784259 (Version 1)
Quarter: 2019Q3

REPORT INFORMATION
  Report Type: Other
  Country: DE (occurrence: DE)
  Receive Date: 20190909
  Receipt Date: 20190909
  Transmission Date: 20191005
  Serious: Yes (Congenital Anomaly, Other)
  Sender: FDA-Public Use
  Company Number: DE-EMBRYOTOX-201414655

PATIENT
  Age: 9 Month
  Sex: Male
  Weight: 3.98 kg

DRUGS (3)
  1. LEVETIRACETAM. [Suspect]
     Active Substance: LEVETIRACETAM
     Indication: EPILEPSY
     Dosage: 500 MILLIGRAM, BID
     Route: 064
     Dates: start: 20140927, end: 20150717
  2. FENOTEROL HYDROBROMIDE;IPRATROPIUM BROMIDE [Concomitant]
     Indication: ASTHMA
     Dosage: 500 MILLIGRAM, BID
     Route: 064
     Dates: start: 20140927, end: 201507
  3. NOVOPULMON [Suspect]
     Active Substance: BUDESONIDE
     Indication: ASTHMA
     Dosage: 0.4 MILLIGRAM, BID
     Route: 064
     Dates: start: 20140927, end: 20150717

REACTIONS (3)
  - Pancreatic cyst [Not Recovered/Not Resolved]
  - Foetal exposure during pregnancy [Unknown]
  - Congenital hydronephrosis [Not Recovered/Not Resolved]

NARRATIVE: CASE EVENT DATE: 20141011
